FAERS Safety Report 5946987-7 (Version None)
Quarter: 2008Q4

REPORT INFORMATION
  Report Type: 
  Country: None (occurrence: None)
  Receive Date: 20081107
  Receipt Date: 20081107
  Transmission Date: 20090506
  Serious: No
  Sender: FDA-Public Use
  Company Number: None

PATIENT
  Age: 31 Year
  Sex: Female
  Weight: 102.0593 kg

DRUGS (1)
  1. MIRENA [Suspect]
     Indication: CONTRACEPTION
     Dosage: N/A
     Dates: start: 20080701, end: 20081101

REACTIONS (10)
  - ACNE [None]
  - DISCOMFORT [None]
  - FATIGUE [None]
  - LIBIDO DECREASED [None]
  - MENORRHAGIA [None]
  - MOOD SWINGS [None]
  - NODULE [None]
  - PAIN [None]
  - VAGINAL DISCHARGE [None]
  - WEIGHT INCREASED [None]
